FAERS Safety Report 6958045-3 (Version None)
Quarter: 2010Q3

REPORT INFORMATION
  Report Type: 
  Country: None (occurrence: None)
  Receive Date: 20100831
  Receipt Date: 20100826
  Transmission Date: 20110219
  Serious: Yes (Hospitalization, Other)
  Sender: FDA-Public Use
  Company Number: US-BRISTOL-MYERS SQUIBB COMPANY-15257165

PATIENT
  Age: 75 Year
  Sex: Female

DRUGS (12)
  1. PRAVACHOL [Suspect]
  2. FORTEO [Suspect]
     Indication: OSTEOPOROSIS
     Dosage: VIA PREFILLED DISPOSABLE PEN.
     Dates: start: 20100201
  3. LOTREL [Concomitant]
  4. METOPROLOL TARTRATE [Concomitant]
  5. NEXIUM [Concomitant]
  6. SYNTHROID [Concomitant]
  7. KLONOPIN [Concomitant]
  8. PLAVIX [Concomitant]
  9. ASPIRIN [Concomitant]
  10. FISH OIL [Concomitant]
  11. METHYLSULFONYLMETHANE [Concomitant]
  12. VITAMINS + MINERALS [Concomitant]

REACTIONS (3)
  - CHEST PAIN [None]
  - CHOLECYSTECTOMY [None]
  - HEPATIC ENZYME INCREASED [None]
